FAERS Safety Report 5935737-6 (Version None)
Quarter: 2008Q4

REPORT INFORMATION
  Report Type: 
  Country: None (occurrence: None)
  Receive Date: 20081029
  Receipt Date: 20081029
  Transmission Date: 20090506
  Serious: No
  Sender: FDA-Public Use
  Company Number: None

PATIENT
  Age: 57 Year
  Sex: Male
  Weight: 94.35 kg

DRUGS (1)
  1. CLOPIDOGREL [Suspect]
     Indication: PERIPHERAL VASCULAR DISORDER
     Dosage: 75 MG EVERY DAY PO
     Route: 048
     Dates: start: 20080829, end: 20080901

REACTIONS (2)
  - DIARRHOEA [None]
  - RASH [None]
